FAERS Safety Report 4289676-X (Version None)
Quarter: 2004Q1

REPORT INFORMATION
  Report Type: 
  Country: None (occurrence: None)
  Receive Date: 20040203
  Receipt Date: 20030623
  Transmission Date: 20041129
  Serious: Yes (Hospitalization, Other)
  Sender: FDA-Public Use
  Company Number: 200319581BWH

PATIENT

DRUGS (2)
  1. AVELOX [Suspect]
  2. ANTIBIOTICS (NOS), (ANTIBIOTICS) [Suspect]

REACTIONS (1)
  - STEVENS-JOHNSON SYNDROME [None]
